FAERS Safety Report 10684358 (Version 2)
Quarter: 2015Q1

REPORT INFORMATION
  Report Type: Spontaneous
  Country: SA (occurrence: SA)
  Receive Date: 20141231
  Receipt Date: 20150128
  Transmission Date: 20150720
  Serious: Yes (Life-Threatening)
  Sender: FDA-Public Use
  Company Number: SA-ROCHE-1515184

PATIENT
  Sex: Female
  Weight: 75 kg

DRUGS (3)
  1. HERCEPTIN [Suspect]
     Active Substance: TRASTUZUMAB
     Indication: BREAST CANCER METASTATIC
     Route: 042
     Dates: start: 201402, end: 20141228
  2. XELODA [Concomitant]
     Active Substance: CAPECITABINE
     Indication: METASTASES TO BONE
     Route: 048
     Dates: start: 201406, end: 201408
  3. NAVELBINE [Concomitant]
     Active Substance: VINORELBINE TARTRATE
     Indication: METASTASES TO BONE
     Route: 048
     Dates: start: 201401, end: 201406

REACTIONS (1)
  - Metastases to bone [Recovered/Resolved with Sequelae]
